FAERS Safety Report 4559450-5 (Version None)
Quarter: 2005Q1

REPORT INFORMATION
  Report Type: 
  Country: None (occurrence: None)
  Receive Date: 20050124
  Receipt Date: 20050114
  Transmission Date: 20050727
  Serious: Yes (Other)
  Sender: FDA-Public Use
  Company Number: US-JNJFOC-20050104083

PATIENT
  Sex: Female

DRUGS (2)
  1. TOPAMAX [Suspect]
     Indication: MIGRAINE
     Dates: start: 20041227
  2. LEVOTHROID [Concomitant]

REACTIONS (2)
  - BLINDNESS [None]
  - INTRAOCULAR PRESSURE INCREASED [None]
